FAERS Safety Report 9911234 (Version 1)
Quarter: 2014Q1

REPORT INFORMATION
  Report Type: Spontaneous
  Country: US (occurrence: US)
  Receive Date: 20140219
  Receipt Date: 20140219
  Transmission Date: 20141002
  Serious: Yes (Other)
  Sender: FDA-Public Use
  Company Number: US-MYLANLABS-2014S1002964

PATIENT
  Age: 65 Year
  Sex: Male
  Weight: 53.6 kg

DRUGS (25)
  1. WARFARIN [Suspect]
     Dosage: 5MG ON DAY 1
     Route: 065
  2. WARFARIN [Interacting]
     Dosage: 8MG ON DAY 2
     Route: 065
  3. WARFARIN [Interacting]
     Dosage: 10MG ON DAY 3
     Route: 065
  4. WARFARIN [Interacting]
     Dosage: 12MG ON DAY 4
     Route: 065
  5. WARFARIN [Interacting]
     Dosage: 15MG ON DAY 5-7
     Route: 065
  6. WARFARIN [Interacting]
     Dosage: 20MG ON DAY 8
     Route: 065
  7. WARFARIN [Interacting]
     Dosage: 15MG ON DAY 9
     Route: 065
  8. ASCORBIC ACID [Interacting]
     Dosage: 500MG ONCE ON DAY OF ADMISSION, THEN TWICE DAILY
     Route: 048
  9. ASCORBIC ACID [Interacting]
     Dosage: DAYS 1-7
     Route: 048
  10. AMLODIPINE [Concomitant]
     Dosage: 2.5MG DAILY
     Route: 048
  11. ASPIRIN [Concomitant]
     Dosage: 81MG DAILY
     Route: 048
  12. CARVEDILOL [Concomitant]
     Route: 048
  13. ESOMEPRAZOLE [Concomitant]
     Dosage: 40MG DAILY
     Route: 048
  14. FUROSEMIDE [Concomitant]
     Dosage: INCREASED TO 80MG DAILY UPON HOSPITALISATION
     Route: 048
  15. LORAZEPAM [Concomitant]
     Dosage: 0.5MG AT BEDTIME AS NEEDED
     Route: 048
  16. LOSARTAN [Concomitant]
     Dosage: 50MG DAILY
     Route: 048
  17. MAGNESIUM [Concomitant]
     Dosage: 400MG DAILY
     Route: 048
  18. NICOTINE [Concomitant]
     Dosage: 14MG/24H
     Route: 062
  19. SIMVASTATIN [Concomitant]
     Dosage: 10MG DAILY AT BEDTIME
     Route: 048
  20. TIOTROPIUM BROMIDE [Concomitant]
     Dosage: 18MICROG DAILY
     Route: 055
  21. VITAMIN D [Concomitant]
     Dosage: 400U DAILY
     Route: 048
  22. ENOXAPARIN SODIUM [Concomitant]
     Dosage: DECREASED ON DAY 2
     Route: 058
  23. ENOXAPARIN SODIUM [Concomitant]
     Dosage: FROM DAY 2- DAY 8
     Route: 058
  24. ENOXAPARIN SODIUM [Concomitant]
     Dosage: 50MG ON DAY 9
     Route: 058
  25. IRON [Concomitant]
     Indication: MINERAL SUPPLEMENTATION
     Route: 048

REACTIONS (2)
  - Drug resistance [Recovered/Resolved]
  - Drug interaction [Recovered/Resolved]
